FAERS Safety Report 9689394 (Version 2)
Quarter: 2013Q4

REPORT INFORMATION
  Report Type: Spontaneous
  Country: DK (occurrence: DK)
  Receive Date: 20131114
  Receipt Date: 20131119
  Transmission Date: 20140711
  Serious: Yes (Other)
  Sender: FDA-Public Use
  Company Number: DK-US-EMD SERONO, INC.-E2B_7248596

PATIENT
  Age: 35 Year
  Sex: Female
  Weight: 73 kg

DRUGS (1)
  1. REBIF [Suspect]
     Indication: MULTIPLE SCLEROSIS
     Dosage: DOSIS: 22 ENHEDER, 1 SPROJTE 3 GANGE UGENTLIGT, STYRKE: 22
     Route: 058
     Dates: start: 20130904

REACTIONS (2)
  - Syncope [Recovered/Resolved]
  - Muscle spasms [Recovered/Resolved]
